FAERS Safety Report 7392640-5 (Version None)
Quarter: 2011Q2

REPORT INFORMATION
  Report Type: 
  Country: None (occurrence: None)
  Receive Date: 20110404
  Receipt Date: 20110328
  Transmission Date: 20111010
  Serious: Yes (Other)
  Sender: FDA-Public Use
  Company Number: US-US-EMD SERONO, INC.-7046521

PATIENT
  Sex: Female

DRUGS (9)
  1. REBIF [Suspect]
     Indication: PRODUCT USED FOR UNKNOWN INDICATION
     Route: 058
     Dates: start: 20090901, end: 20100101
  2. PREVACID [Concomitant]
  3. METHOCARBAMOL [Concomitant]
  4. FOSAMAX [Concomitant]
  5. LOSARTAN POTASSIUM [Concomitant]
  6. REBIF [Suspect]
     Route: 058
     Dates: start: 20100101, end: 20110301
  7. LASIX [Concomitant]
  8. ENABLEX [Concomitant]
  9. TIZANIDINE [Concomitant]

REACTIONS (3)
  - ANAEMIA [None]
  - NEPHROPATHY [None]
  - GLOMERULONEPHRITIS [None]
